FAERS Safety Report 20299696 (Version 1)
Quarter: 2022Q1

REPORT INFORMATION
  Report Type: Report from Study
  Country: US (occurrence: US)
  Receive Date: 20220105
  Receipt Date: 20220105
  Transmission Date: 20220423
  Serious: Yes (Hospitalization)
  Sender: FDA-Public Use
  Company Number: US-AMGEN-USACT2021206727

PATIENT
  Age: 5 Year
  Sex: Female
  Weight: 17.6 kg

DRUGS (3)
  1. BLINATUMOMAB [Suspect]
     Active Substance: BLINATUMOMAB
     Indication: B precursor type acute leukaemia
     Dosage: 15 MICROGRAM/SQ. METER, QD
     Route: 042
     Dates: start: 20211012, end: 20211109
  2. METHOTREXATE [Suspect]
     Active Substance: METHOTREXATE
     Indication: B precursor type acute leukaemia
     Dosage: TOTAL DOSE ADMINISTERED: 180.5 MG
     Route: 037
  3. VINCRISTINE SULFATE [Suspect]
     Active Substance: VINCRISTINE SULFATE
     Indication: B precursor type acute leukaemia
     Dosage: TOTAL DOSE ADMINISTERED: 2.18 MG
     Route: 065

REACTIONS (3)
  - Stomatitis [Not Recovered/Not Resolved]
  - Eczema [Unknown]
  - Gastritis [Unknown]

NARRATIVE: CASE EVENT DATE: 20211130
